FAERS Safety Report 8890471 (Version 4)
Quarter: 2013Q1

REPORT INFORMATION
  Report Type: Spontaneous
  Country: JP (occurrence: JP)
  Receive Date: 20121107
  Receipt Date: 20130117
  Transmission Date: 20140127
  Serious: Yes (Life-Threatening, Hospitalization, Other)
  Sender: FDA-Public Use
  Company Number: PHHY2012JP101359

PATIENT
  Age: 81 Year
  Sex: Male
  Weight: 62 kg

DRUGS (7)
  1. ONBREZ [Suspect]
     Indication: CHRONIC OBSTRUCTIVE PULMONARY DISEASE
     Dosage: 150 UG, QD
     Dates: start: 20121009, end: 20121016
  2. SPIRIVA [Concomitant]
     Indication: CHRONIC OBSTRUCTIVE PULMONARY DISEASE
     Dosage: 2.5 UG, QD
     Dates: start: 20051201, end: 20121017
  3. SPIRIVA [Concomitant]
     Dosage: 18 UG, UNK
     Dates: start: 20121101
  4. SPIRIVA [Concomitant]
     Dosage: UNK
     Dates: start: 20121101
  5. SPIRIVA [Concomitant]
     Dosage: 2.5 UG, UNK
     Dates: start: 20051201
  6. MEPTIN AIR [Concomitant]
     Indication: CHRONIC OBSTRUCTIVE PULMONARY DISEASE
     Dosage: 30 UG, UNK
     Dates: start: 20101228, end: 20121017
  7. MEPTIN AIR [Concomitant]
     Indication: CHRONIC OBSTRUCTIVE PULMONARY DISEASE
     Dosage: 2.5 UG, DAILY
     Dates: start: 20121101

REACTIONS (8)
  - Cerebral infarction [Recovered/Resolved with Sequelae]
  - Dysarthria [Recovered/Resolved with Sequelae]
  - Somnolence [Recovered/Resolved with Sequelae]
  - Depressed level of consciousness [Recovered/Resolved with Sequelae]
  - Hemiparesis [Recovered/Resolved with Sequelae]
  - Eye movement disorder [Recovered/Resolved with Sequelae]
  - Speech disorder [Recovered/Resolved with Sequelae]
  - Atrial fibrillation [Recovering/Resolving]
